FAERS Safety Report 13338335 (Version 1)
Quarter: 2017Q1

REPORT INFORMATION
  Report Type: Spontaneous
  Country: US (occurrence: US)
  Receive Date: 20170315
  Receipt Date: 20170315
  Transmission Date: 20170428
  Serious: No
  Sender: FDA-Public Use
  Company Number: US-BAYER-2017-048622

PATIENT
  Age: 91 Year
  Sex: Female
  Weight: 72.97 kg

DRUGS (25)
  1. LEVOTHYROXIN [Concomitant]
     Active Substance: LEVOTHYROXINE
  2. PLAVIX [Concomitant]
     Active Substance: CLOPIDOGREL BISULFATE
  3. TRAZODONE [Concomitant]
     Active Substance: TRAZODONE HYDROCHLORIDE
  4. BAYER LOW DOSE [Concomitant]
     Active Substance: ASPIRIN
  5. METOPROLOL. [Concomitant]
     Active Substance: METOPROLOL
  6. LASIX [Concomitant]
     Active Substance: FUROSEMIDE
  7. GLIPIZIDE. [Concomitant]
     Active Substance: GLIPIZIDE
  8. VITAMIN D [Concomitant]
     Active Substance: CHOLECALCIFEROL
  9. LANTUS [Concomitant]
     Active Substance: INSULIN GLARGINE
  10. MIRALAX [Suspect]
     Active Substance: POLYETHYLENE GLYCOL 3350
     Indication: GASTROINTESTINAL DISORDER
     Dosage: UNK
     Route: 048
     Dates: start: 2011, end: 20170312
  11. ALBUTEROL. [Concomitant]
     Active Substance: ALBUTEROL
  12. MAGNESIUM [Concomitant]
     Active Substance: MAGNESIUM
  13. SENNA [Concomitant]
     Active Substance: SENNA LEAF\SENNOSIDES\SENNOSIDES A AND B
  14. JANUVIA [Concomitant]
     Active Substance: SITAGLIPTIN PHOSPHATE
  15. PROTONIX [Concomitant]
     Active Substance: PANTOPRAZOLE SODIUM
  16. APIXABAN [Concomitant]
     Active Substance: APIXABAN
  17. LIPITOR [Concomitant]
     Active Substance: ATORVASTATIN CALCIUM
  18. TYLENOL WITH CODEINE [Concomitant]
     Active Substance: ACETAMINOPHEN\CODEINE PHOSPHATE
  19. MULTIVITAMIN [Concomitant]
     Active Substance: VITAMINS
  20. COZAAR [Concomitant]
     Active Substance: LOSARTAN POTASSIUM
  21. LOSARTAN. [Concomitant]
     Active Substance: LOSARTAN
  22. DIGOXIN. [Concomitant]
     Active Substance: DIGOXIN
  23. POTASSIUM [Concomitant]
     Active Substance: POTASSIUM
  24. LACTOBACILLUS RHAMNOSUS [Concomitant]
     Active Substance: LACTOBACILLUS RHAMNOSUS
  25. COLACE [Concomitant]
     Active Substance: DOCUSATE SODIUM

REACTIONS (3)
  - Off label use [Unknown]
  - Product use issue [Unknown]
  - Wrong technique in product usage process [Unknown]

NARRATIVE: CASE EVENT DATE: 2011
